FAERS Safety Report 7271920-8 (Version None)
Quarter: 2011Q1

REPORT INFORMATION
  Report Type: 
  Country: None (occurrence: None)
  Receive Date: 20110203
  Receipt Date: 20110128
  Transmission Date: 20110831
  Serious: Yes (Other)
  Sender: FDA-Public Use
  Company Number: RU-PFIZER INC-2011013010

PATIENT
  Age: 60 Year
  Sex: Male
  Weight: 93 kg

DRUGS (5)
  1. SUTENT [Suspect]
     Indication: RENAL CANCER
     Dosage: 50 MG, 1X/DAY, CYCLES (28 DAYS OF ADMINISTRATION FOLLOWED BY 14 DAYS OF INTERRUPTION)
     Route: 048
     Dates: start: 20100201
  2. CREON [Concomitant]
     Indication: PANCREAS DIVISUM
     Dosage: 25 MG, 3X/DAY
     Route: 048
  3. LEVOTHYROXINE SODIUM [Concomitant]
     Indication: HYPOTHYROIDISM
     Dosage: 175 UG, 1X/DAY
     Route: 048
  4. ADEMETIONINE [Concomitant]
     Dosage: DURING 10 DAYS WHILE SUNITINIBE INTERRUPTION
     Route: 041
  5. AERIUS [Concomitant]
     Indication: DRUG TOLERANCE INCREASED
     Dosage: EVERY LAST WEEK OF SUTENT CYCLE
     Route: 048

REACTIONS (14)
  - PARAESTHESIA [None]
  - HYPOTHYROIDISM [None]
  - HYPOGLYCAEMIA [None]
  - STOMATITIS [None]
  - DIARRHOEA [None]
  - EYE PAIN [None]
  - WEIGHT DECREASED [None]
  - DECREASED APPETITE [None]
  - BLOOD IRON DECREASED [None]
  - ECZEMA [None]
  - OCULAR HYPERAEMIA [None]
  - HAEMOGLOBIN DECREASED [None]
  - OEDEMA PERIPHERAL [None]
  - ASTHENIA [None]
